FAERS Safety Report 12596007 (Version 2)
Quarter: 2016Q3

REPORT INFORMATION
  Report Type: Report from Study
  Country: CN (occurrence: CN)
  Receive Date: 20160727
  Receipt Date: 20160817
  Transmission Date: 20161109
  Serious: Yes (Hospitalization)
  Sender: FDA-Public Use
  Company Number: CN-ROCHE-1800836

PATIENT
  Age: 45 Year
  Sex: Male
  Weight: 60 kg

DRUGS (11)
  1. UROKINASE [Concomitant]
     Active Substance: UROKINASE
     Route: 065
     Dates: start: 20160721, end: 20160721
  2. OXYCODONE HYDROCHLORIDE. [Concomitant]
     Active Substance: OXYCODONE HYDROCHLORIDE
     Indication: CHEST PAIN
     Dosage: PROLONGED-RELEASE
     Route: 065
     Dates: start: 20160720, end: 20160721
  3. METOCLOPRAMIDE. [Concomitant]
     Active Substance: METOCLOPRAMIDE
     Indication: NAUSEA
     Route: 065
     Dates: start: 20160720, end: 20160721
  4. PROPRANOLOL HYDROCHLORIDE. [Concomitant]
     Active Substance: PROPRANOLOL HYDROCHLORIDE
     Indication: PALPITATIONS
     Route: 065
     Dates: start: 20160720
  5. CELECOXIB. [Concomitant]
     Active Substance: CELECOXIB
     Indication: BACK PAIN
  6. AMBROXOL HYDROCHLORIDE [Concomitant]
     Active Substance: AMBROXOL HYDROCHLORIDE
     Indication: COUGH
     Route: 048
     Dates: start: 20160721
  7. LACTULOSE. [Concomitant]
     Active Substance: LACTULOSE
     Indication: CONSTIPATION
     Route: 048
     Dates: start: 20160720, end: 20160721
  8. CELECOXIB. [Concomitant]
     Active Substance: CELECOXIB
     Indication: CHEST PAIN
     Route: 065
     Dates: start: 20160601
  9. OXYCODONE HYDROCHLORIDE. [Concomitant]
     Active Substance: OXYCODONE HYDROCHLORIDE
     Indication: BACK PAIN
  10. ATEZOLIZUMAB [Suspect]
     Active Substance: ATEZOLIZUMAB
     Indication: NON-SMALL CELL LUNG CANCER
     Dosage: MOST RECENT DOSE: 01/JUL/2016
     Route: 042
     Dates: start: 20160701
  11. DIHYDROCODEINE + PARACETAMOL [Concomitant]
     Indication: COUGH
     Route: 065
     Dates: start: 20160601

REACTIONS (1)
  - Pleural effusion [Recovering/Resolving]

NARRATIVE: CASE EVENT DATE: 20160707
